FAERS Safety Report 19455606 (Version 1)
Quarter: 2021Q2

REPORT INFORMATION
  Report Type: Spontaneous
  Country: GB (occurrence: GB)
  Receive Date: 20210623
  Receipt Date: 20210623
  Transmission Date: 20210717
  Serious: Yes (Disabling, Other)
  Sender: FDA-Public Use
  Company Number: GB-GRANULES-GB-2021GRALIT00347

PATIENT
  Age: 36 Year
  Sex: Female

DRUGS (1)
  1. SERTRALINE HYDROCHLORIDE. [Suspect]
     Active Substance: SERTRALINE HYDROCHLORIDE
     Indication: DEPRESSION
     Route: 065

REACTIONS (3)
  - Maculopathy [Not Recovered/Not Resolved]
  - Central vision loss [Not Recovered/Not Resolved]
  - Headache [Not Recovered/Not Resolved]
